FAERS Safety Report 9514014 (Version 1)
Quarter: 2013Q3

REPORT INFORMATION
  Report Type: Spontaneous
  Country: US (occurrence: US)
  Receive Date: 20130910
  Receipt Date: 20130910
  Transmission Date: 20140515
  Serious: Yes (Hospitalization)
  Sender: FDA-Public Use
  Company Number: US-B.I. PHARMACEUTICALS,INC./RIDGEFIELD-2013-BI-27675BP

PATIENT
  Age: 81 Year
  Sex: Male

DRUGS (10)
  1. SPIRIVA [Suspect]
     Indication: CHRONIC OBSTRUCTIVE PULMONARY DISEASE
     Dosage: 18 MCG
     Route: 055
     Dates: start: 2011
  2. AMLODIPINE [Concomitant]
     Dosage: 5 MG
     Route: 048
  3. OCUVITE [Concomitant]
     Indication: PROPHYLAXIS
     Dosage: STRENGTH: 1 TABLET; DAILY DOSE: 1 TABLET
     Route: 048
  4. WARFARIN [Concomitant]
     Indication: ATRIAL FIBRILLATION
     Dosage: 5 MG
     Route: 048
     Dates: start: 201302
  5. ADVIL PM [Concomitant]
     Indication: SLEEP DISORDER
     Dosage: STRENGTH: 1 CAPSULE; DAILY DOSE: 1 CAPSULE
     Route: 048
  6. PRAVASTATIN [Concomitant]
     Indication: BLOOD CHOLESTEROL INCREASED
     Dosage: 40 MG
     Route: 048
  7. LASIX [Concomitant]
     Indication: CARDIAC FAILURE CONGESTIVE
     Dosage: 40 MG
     Route: 048
  8. LISINOPRIL [Concomitant]
     Dosage: 40 MG
     Route: 048
  9. METOPROLOL [Concomitant]
     Indication: HYPERTENSION
     Dosage: 50 MG
     Route: 048
  10. POTASSIUM [Concomitant]
     Indication: MINERAL SUPPLEMENTATION
     Dosage: 20 MEQ
     Route: 048

REACTIONS (1)
  - Coronary artery disease [Unknown]
